FAERS Safety Report 4428829-4 (Version None)
Quarter: 2004Q3

REPORT INFORMATION
  Report Type: 
  Country: None (occurrence: None)
  Receive Date: 20040818
  Receipt Date: 20040806
  Transmission Date: 20050211
  Serious: Yes (Other)
  Sender: FDA-Public Use
  Company Number: CH-GLAXOSMITHKLINE-B0341956A

PATIENT
  Age: 52 Year
  Sex: Female

DRUGS (3)
  1. VALTREX [Suspect]
     Indication: HERPES ZOSTER
     Dosage: 1000MG THREE TIMES PER DAY
     Route: 048
     Dates: start: 20040804, end: 20040806
  2. ZOVIRAX [Concomitant]
     Indication: HERPES ZOSTER
     Route: 061
     Dates: start: 20040806
  3. SALICYLIC ACID [Concomitant]
     Indication: HERPES ZOSTER
     Dosage: 500MG AS REQUIRED
     Route: 048
     Dates: start: 20040806

REACTIONS (1)
  - DEAFNESS [None]
